FAERS Safety Report 11409204 (Version 4)
Quarter: 2016Q2

REPORT INFORMATION
  Report Type: Report from Study
  Country: CA (occurrence: CA)
  Receive Date: 20150824
  Receipt Date: 20160518
  Transmission Date: 20160815
  Serious: Yes (Hospitalization, Other)
  Sender: FDA-Public Use
  Company Number: CA-ROCHE-1624891

PATIENT
  Age: 88 Year
  Sex: Male

DRUGS (10)
  1. ESBRIET [Suspect]
     Active Substance: PIRFENIDONE
     Indication: IDIOPATHIC PULMONARY FIBROSIS
     Route: 048
     Dates: start: 20150715
  2. THYROXIN [Concomitant]
     Active Substance: LEVOTHYROXINE
  3. OXYGEN. [Concomitant]
     Active Substance: OXYGEN
  4. ESBRIET [Suspect]
     Active Substance: PIRFENIDONE
     Route: 048
     Dates: start: 20150729, end: 20160106
  5. GLICLAZIDE [Concomitant]
     Active Substance: GLICLAZIDE
  6. COUMADIN [Concomitant]
     Active Substance: WARFARIN SODIUM
  7. DIGOXIN. [Concomitant]
     Active Substance: DIGOXIN
  8. METFORMIN [Concomitant]
     Active Substance: METFORMIN HYDROCHLORIDE
  9. ENALAPRIL [Concomitant]
     Active Substance: ENALAPRIL
  10. ESBRIET [Suspect]
     Active Substance: PIRFENIDONE
     Route: 048
     Dates: start: 20150722

REACTIONS (7)
  - Oxygen saturation decreased [Unknown]
  - Gastrointestinal haemorrhage [Unknown]
  - Haemoglobin decreased [Unknown]
  - Cyanosis [Unknown]
  - Dyspnoea [Not Recovered/Not Resolved]
  - Peripheral swelling [Unknown]
  - Blood glucose increased [Unknown]

NARRATIVE: CASE EVENT DATE: 20151103
